FAERS Safety Report 19929049 (Version 2)
Quarter: 2021Q4

REPORT INFORMATION
  Report Type: Spontaneous
  Country: US (occurrence: US)
  Receive Date: 20211007
  Receipt Date: 20211222
  Transmission Date: 20220303
  Serious: No
  Sender: FDA-Public Use
  Company Number: US-BAYER-2021A219207

PATIENT
  Age: 46 Year
  Sex: Female

DRUGS (2)
  1. MIRENA [Suspect]
     Active Substance: LEVONORGESTREL
     Indication: Abnormal uterine bleeding
     Dosage: 20?G/DAY
     Route: 015
     Dates: start: 20190618
  2. UNISOM [DOXYLAMINE SUCCINATE] [Concomitant]

REACTIONS (3)
  - Off label use of device [None]
  - Abnormal uterine bleeding [Recovering/Resolving]
  - Device use issue [None]

NARRATIVE: CASE EVENT DATE: 20200928
